FAERS Safety Report 5519621-8 (Version None)
Quarter: 2007Q4

REPORT INFORMATION
  Report Type: 
  Country: None (occurrence: None)
  Receive Date: 20071116
  Receipt Date: 20071108
  Transmission Date: 20080405
  Serious: Yes (Hospitalization, Other)
  Sender: FDA-Public Use
  Company Number: GR-ROCHE-530509

PATIENT
  Age: 65 Year
  Sex: Female

DRUGS (1)
  1. BONIVA [Suspect]
     Indication: DRUG USE FOR UNKNOWN INDICATION
     Dosage: FORM: F.C. TABS.
     Route: 048

REACTIONS (9)
  - ABDOMINAL PAIN [None]
  - CONVULSION [None]
  - DIZZINESS [None]
  - GASTROINTESTINAL DISORDER [None]
  - HEADACHE [None]
  - HYPERPYREXIA [None]
  - MUSCULOSKELETAL STIFFNESS [None]
  - VISUAL DISTURBANCE [None]
  - VOMITING [None]
